FAERS Safety Report 23803347 (Version 1)
Quarter: 2024Q2

REPORT INFORMATION
  Report Type: Spontaneous
  Country: US (occurrence: None)
  Receive Date: 20240430
  Receipt Date: 20240430
  Transmission Date: 20240716
  Serious: No
  Sender: FDA-Public Use
  Company Number: None

PATIENT
  Age: 84 Year
  Sex: Male
  Weight: 118 kg

DRUGS (15)
  1. SEMAGLUTIDE [Suspect]
     Active Substance: SEMAGLUTIDE
     Indication: Weight decreased
     Dosage: OTHER FREQUENCY : WEEKLY;?
     Route: 058
  2. AMLODIPINE [Concomitant]
     Active Substance: AMLODIPINE BESYLATE
  3. CHOLECALCIFEROL [Concomitant]
     Active Substance: CHOLECALCIFEROL
  4. COENZYME Q10 [Concomitant]
     Active Substance: DIETARY SUPPLEMENT\UBIDECARENONE
  5. DULOXETINE [Concomitant]
     Active Substance: DULOXETINE
  6. MOMETASONE FUROATE [Concomitant]
     Active Substance: MOMETASONE FUROATE
  7. VITAMINS [Concomitant]
     Active Substance: VITAMINS
  8. NAPROXEN [Concomitant]
     Active Substance: NAPROXEN
  9. POLYETHYLENE GLYCOL [Concomitant]
     Active Substance: POLYETHYLENE GLYCOL
  10. SENNA [Concomitant]
     Active Substance: SENNA LEAF\SENNOSIDES\SENNOSIDES A AND B
  11. SOLIFENACIN SUCCINATE [Concomitant]
     Active Substance: SOLIFENACIN SUCCINATE
  12. TADALAFIL [Concomitant]
     Active Substance: TADALAFIL
  13. TAMSULOSIN [Concomitant]
     Active Substance: TAMSULOSIN
  14. TELMISARTAN [Concomitant]
     Active Substance: TELMISARTAN
  15. TRAZODONE [Concomitant]
     Active Substance: TRAZODONE HYDROCHLORIDE

REACTIONS (8)
  - Hypotension [None]
  - Constipation [None]
  - Respiratory disorder [None]
  - Perforation [None]
  - Blood creatinine abnormal [None]
  - Necrosis [None]
  - Gastrointestinal necrosis [None]
  - Ventricular fibrillation [None]

NARRATIVE: CASE EVENT DATE: 20240402
